FAERS Safety Report 6153147-6 (Version None)
Quarter: 2009Q2

REPORT INFORMATION
  Report Type: 
  Country: None (occurrence: None)
  Receive Date: 20090413
  Receipt Date: 20090402
  Transmission Date: 20091009
  Serious: Yes (Hospitalization)
  Sender: FDA-Public Use
  Company Number: US-ELI_LILLY_AND_COMPANY-US200904000569

PATIENT
  Sex: Female

DRUGS (18)
  1. FORTEO [Suspect]
     Indication: OSTEOPOROSIS
     Dates: start: 20080301
  2. MULTI-VITAMIN [Concomitant]
     Dosage: UNK, DAILY (1/D)
  3. CALCIUM                                 /N/A/ [Concomitant]
     Dosage: 600 MG, 2/D
  4. VITAMIN D [Concomitant]
     Dosage: 50000 U, WEEKLY (1/W)
  5. NEXIUM [Concomitant]
     Dosage: 40 MG, DAILY (1/D)
  6. PAXIL [Concomitant]
     Dosage: 10 MG, DAILY (1/D)
  7. TOPROL-XL [Concomitant]
     Dosage: 25 MG, DAILY (1/D)
  8. DAYPRO [Concomitant]
     Dosage: 600 MG, DAILY (1/D)
  9. LORATADINE [Concomitant]
     Dosage: 10 MG, DAILY (1/D)
  10. FIBERCON [Concomitant]
     Dosage: UNK, DAILY (1/D)
  11. FLONASE [Concomitant]
     Dosage: 2 SPRAYS
  12. AZMACORT [Concomitant]
     Dosage: 2 SPRAYS
  13. SINGULAIR [Concomitant]
     Dosage: 10 MG, DAILY (1/D)
  14. ASPIRIN [Concomitant]
     Dosage: UNK, DAILY (1/D)
  15. PRAVACHOL [Concomitant]
     Dosage: 40 MG, DAILY (1/D)
  16. DITROPAN [Concomitant]
     Dosage: 10 MG, DAILY (1/D)
  17. PERCOCET [Concomitant]
     Dosage: 1 UNK, AS NEEDED
  18. PERCOCET [Concomitant]
     Dosage: 10 MG, AS NEEDED

REACTIONS (3)
  - FRACTURE NONUNION [None]
  - LOWER LIMB FRACTURE [None]
  - POSTOPERATIVE WOUND INFECTION [None]
